FAERS Safety Report 4444561-5 (Version None)
Quarter: 2004Q3

REPORT INFORMATION
  Report Type: 
  Country: None (occurrence: None)
  Receive Date: 20040902
  Receipt Date: 20040818
  Transmission Date: 20050211
  Serious: Yes (Hospitalization)
  Sender: FDA-Public Use
  Company Number: 04P-163-0271109-00

PATIENT
  Age: 14 Year
  Sex: Male

DRUGS (2)
  1. BIAXIN XL [Suspect]
     Indication: EAR INFECTION
     Dosage: 500 MG, 1 IN 1 D, PER ORAL
     Route: 048
     Dates: start: 20040804, end: 20040809
  2. CIPRODEX DROPS [Concomitant]

REACTIONS (4)
  - ERYTHEMA NODOSUM [None]
  - JOINT SWELLING [None]
  - PYREXIA [None]
  - STOMATITIS [None]
